FAERS Safety Report 25263333 (Version 1)
Quarter: 2025Q2

REPORT INFORMATION
  Report Type: Spontaneous
  Country: IT (occurrence: IT)
  Receive Date: 20250502
  Receipt Date: 20250502
  Transmission Date: 20250717
  Serious: Yes (Hospitalization, Other)
  Sender: AUROBINDO
  Company Number: IT-STADA-01373871

PATIENT
  Age: 64 Year
  Sex: Female

DRUGS (5)
  1. BORTEZOMIB [Suspect]
     Active Substance: BORTEZOMIB
     Indication: Plasmacytoma
     Route: 065
     Dates: start: 2008
  2. THALIDOMIDE [Suspect]
     Active Substance: THALIDOMIDE
     Indication: Plasmacytoma
     Route: 065
     Dates: start: 2007
  3. DEXAMETHASONE [Suspect]
     Active Substance: DEXAMETHASONE
     Indication: Plasmacytoma
     Route: 065
     Dates: start: 2007
  4. DEXAMETHASONE [Suspect]
     Active Substance: DEXAMETHASONE
     Route: 065
     Dates: start: 2008
  5. WARFARIN [Concomitant]
     Active Substance: WARFARIN
     Indication: Thrombosis prophylaxis
     Route: 065
     Dates: end: 2011

REACTIONS (3)
  - Cerebrovascular accident [Unknown]
  - Pulmonary embolism [Unknown]
  - Drug ineffective [Unknown]
